FAERS Safety Report 25919295 (Version 1)
Quarter: 2025Q4

REPORT INFORMATION
  Report Type: Spontaneous
  Country: US (occurrence: None)
  Receive Date: 20251009
  Receipt Date: 20251009
  Transmission Date: 20260118
  Serious: Yes (Hospitalization)
  Sender: FDA-CTU
  Company Number: None

PATIENT
  Sex: Female
  Weight: 79.65 kg

DRUGS (3)
  1. AMBRISENTAN [Suspect]
     Active Substance: AMBRISENTAN
     Indication: Pulmonary arterial hypertension
     Dosage: FREQUENCY : DAILY;?
     Route: 048
     Dates: start: 20210212
  2. FLOLAN STERILE DILUENT (50ML) [Concomitant]
  3. TREPROSTINIL [Suspect]
     Active Substance: TREPROSTINIL

REACTIONS (4)
  - Infusion site thrombosis [None]
  - Flushing [None]
  - Paraesthesia [None]
  - Pain in extremity [None]
